FAERS Safety Report 14342187 (Version 1)
Quarter: 2018Q1

REPORT INFORMATION
  Report Type: Spontaneous
  Country: US (occurrence: US)
  Receive Date: 20180102
  Receipt Date: 20180102
  Transmission Date: 20180509
  Serious: No
  Sender: FDA-Public Use
  Company Number: US-TEVA-817391ACC

PATIENT
  Sex: Male

DRUGS (1)
  1. MEFLOQUINE [Suspect]
     Active Substance: MEFLOQUINE
     Indication: MALARIA PROPHYLAXIS
     Route: 065
     Dates: start: 20171013

REACTIONS (2)
  - Incorrect dose administered [Unknown]
  - Dizziness [Unknown]

NARRATIVE: CASE EVENT DATE: 20171013
